FAERS Safety Report 15536740 (Version 1)
Quarter: 2018Q4

REPORT INFORMATION
  Report Type: Report from Study
  Country: CA (occurrence: CA)
  Receive Date: 20181022
  Receipt Date: 20181022
  Transmission Date: 20190205
  Serious: Yes (Hospitalization, Other)
  Sender: FDA-Public Use
  Company Number: CA-JNJFOC-20180304675

PATIENT
  Age: 79 Year
  Sex: Male

DRUGS (2)
  1. IMBRUVICA [Suspect]
     Active Substance: IBRUTINIB
     Indication: CHRONIC LYMPHOCYTIC LEUKAEMIA
     Route: 048
  2. IMBRUVICA [Suspect]
     Active Substance: IBRUTINIB
     Indication: CHRONIC LYMPHOCYTIC LEUKAEMIA
     Dosage: STRENGTH = 140 MG
     Route: 048

REACTIONS (8)
  - Staphylococcal infection [Unknown]
  - Haemoglobin decreased [Unknown]
  - Pleurisy [Unknown]
  - Haemorrhage [Unknown]
  - Sepsis [Unknown]
  - Infection [Unknown]
  - Eyelid margin crusting [Unknown]
  - Pneumonia [Recovered/Resolved]

NARRATIVE: CASE EVENT DATE: 20180822
